FAERS Safety Report 5651535-5 (Version None)
Quarter: 2008Q1

REPORT INFORMATION
  Report Type: 
  Country: None (occurrence: None)
  Receive Date: 20080131
  Receipt Date: 20071115
  Transmission Date: 20080703
  Serious: No
  Sender: FDA-Public Use
  Company Number: US200711003549

PATIENT
  Age: 50 Year
  Sex: Female
  Weight: 102.9 kg

DRUGS (12)
  1. BYETTA [Suspect]
     Indication: TYPE 2 DIABETES MELLITUS
     Dosage: 5 UG, 2/D, SUBCUTANEOUS; 5 UG, 2/D, SUBCUTANEOUS
     Route: 058
     Dates: start: 20050101, end: 20050101
  2. BYETTA [Suspect]
     Indication: TYPE 2 DIABETES MELLITUS
     Dosage: 5 UG, 2/D, SUBCUTANEOUS; 5 UG, 2/D, SUBCUTANEOUS
     Route: 058
     Dates: start: 20071101
  3. EXENATIDE 5MCG PEN, DISPOSABLE DEVICE (EXENATIDE PEN (5MCG)) PEN,DISPO [Concomitant]
  4. METFORMIN HCL [Concomitant]
  5. ESTRADIOL [Concomitant]
  6. ALLEGRA [Concomitant]
  7. PRAVASTATIN [Concomitant]
  8. QUINAPRIL HCL [Concomitant]
  9. LEVOXYL [Concomitant]
  10. ALBUTEROL [Concomitant]
  11. ASPIRIN [Concomitant]
  12. NASONEX [Concomitant]

REACTIONS (5)
  - COUGH [None]
  - NASOPHARYNGITIS [None]
  - NAUSEA [None]
  - THROAT IRRITATION [None]
  - WEIGHT DECREASED [None]
